APPROVED DRUG PRODUCT: LEVOCETIRIZINE DIHYDROCHLORIDE
Active Ingredient: LEVOCETIRIZINE DIHYDROCHLORIDE
Strength: 5MG
Dosage Form/Route: TABLET;ORAL
Application: A202046 | Product #001 | TE Code: AB
Applicant: MICRO LABS LTD INDIA
Approved: Sep 17, 2013 | RLD: No | RS: No | Type: RX